FAERS Safety Report 16011945 (Version 1)
Quarter: 2019Q1

REPORT INFORMATION
  Report Type: Spontaneous
  Country: US (occurrence: US)
  Receive Date: 20190226
  Receipt Date: 20190226
  Transmission Date: 20190418
  Serious: Yes (Death)
  Sender: FDA-Public Use
  Company Number: None

PATIENT
  Age: 82 Year
  Sex: Male

DRUGS (18)
  1. PRILOSEC [Concomitant]
     Active Substance: OMEPRAZOLE MAGNESIUM
  2. TAMSULOSIN [Concomitant]
     Active Substance: TAMSULOSIN
  3. URSODIOL. [Concomitant]
     Active Substance: URSODIOL
  4. FLOMAX [Concomitant]
     Active Substance: TAMSULOSIN HYDROCHLORIDE
  5. LEVOTHYROXIN [Concomitant]
     Active Substance: LEVOTHYROXINE
  6. OMEPRAZOLE. [Concomitant]
     Active Substance: OMEPRAZOLE
  7. TOPROL XL [Concomitant]
     Active Substance: METOPROLOL SUCCINATE
  8. CAPECITABINE. [Suspect]
     Active Substance: CAPECITABINE
     Indication: NEOPLASM MALIGNANT
  9. COUMADIN [Concomitant]
     Active Substance: WARFARIN SODIUM
  10. LACTULOSE. [Concomitant]
     Active Substance: LACTULOSE
  11. SNYTHROID [Concomitant]
  12. ACTIGALL [Concomitant]
     Active Substance: URSODIOL
  13. ASPIRIN. [Concomitant]
     Active Substance: ASPIRIN
  14. ELQUIS [Concomitant]
  15. AVODART [Concomitant]
     Active Substance: DUTASTERIDE
  16. BUMEX [Concomitant]
     Active Substance: BUMETANIDE
  17. DUTASTERIDE. [Concomitant]
     Active Substance: DUTASTERIDE
  18. METROPROL [Concomitant]

REACTIONS (1)
  - Death [None]
